FAERS Safety Report 6143651-9 (Version None)
Quarter: 2009Q2

REPORT INFORMATION
  Report Type: 
  Country: None (occurrence: None)
  Receive Date: 20090403
  Receipt Date: 20090327
  Transmission Date: 20091009
  Serious: Yes (Hospitalization)
  Sender: FDA-Public Use
  Company Number: DE-ROCHE-601174

PATIENT
  Sex: Female
  Weight: 58 kg

DRUGS (5)
  1. MYCOPHENOLATE MOFETIL [Suspect]
     Route: 048
     Dates: end: 20081203
  2. MYCOPHENOLATE MOFETIL [Suspect]
     Route: 048
     Dates: start: 20081202, end: 20081202
  3. PROGRAF [Concomitant]
     Indication: IMMUNOSUPPRESSION
     Route: 048
     Dates: start: 20060101
  4. URSO FALK [Concomitant]
     Indication: PROPHYLAXIS
     Route: 048
     Dates: start: 20060101
  5. PANTOZOL [Concomitant]
     Indication: PROPHYLAXIS
     Route: 048
     Dates: start: 20060101

REACTIONS (4)
  - LEUKOPENIA [None]
  - OVERDOSE [None]
  - SUICIDE ATTEMPT [None]
  - THROMBOCYTOPENIA [None]
